FAERS Safety Report 4897414-2 (Version None)
Quarter: 2006Q1

REPORT INFORMATION
  Report Type: 
  Country: None (occurrence: None)
  Receive Date: 20060130
  Receipt Date: 20060130
  Transmission Date: 20060701
  Serious: Yes (Other)
  Sender: FDA-Public Use
  Company Number: None

PATIENT
  Age: 59 Year
  Sex: Female
  Weight: 56 kg

DRUGS (2)
  1. TARGRETIN [Suspect]
     Indication: LUNG NEOPLASM MALIGNANT
     Dosage: 8 CAP QD PO
     Route: 048
     Dates: start: 20050202, end: 20050808
  2. TAXOTERE [Suspect]
     Dosage: 27.93 MG  QWKX3/Q4WKX6 CYCLE IV DRIP
     Route: 041
     Dates: start: 20050202, end: 20050706

REACTIONS (1)
  - OESOPHAGEAL CANDIDIASIS [None]
